FAERS Safety Report 6456003-9 (Version None)
Quarter: 2009Q4

REPORT INFORMATION
  Report Type: 
  Country: None (occurrence: None)
  Receive Date: 20091125
  Receipt Date: 20091116
  Transmission Date: 20100525
  Serious: No
  Sender: FDA-Public Use
  Company Number: US-JNJFOC-20091104984

PATIENT
  Sex: Female
  Weight: 77.11 kg

DRUGS (8)
  1. FENTANYL CITRATE [Suspect]
     Dosage: NDC#: 0781-7113-55
     Route: 062
     Dates: start: 20090801
  2. FENTANYL CITRATE [Suspect]
     Indication: PAIN
     Route: 062
     Dates: start: 20090801
  3. VICODIN [Concomitant]
     Indication: PAIN
     Dosage: 5MG/500MG/AS NEEDED/ORAL
     Route: 048
     Dates: start: 19980101
  4. LEXAPRO [Concomitant]
     Indication: ANTIDEPRESSANT THERAPY
     Route: 048
  5. BACLOFEN [Concomitant]
     Indication: MUSCLE DISORDER
     Route: 048
  6. TEGRETOL [Concomitant]
     Indication: MUSCLE DISORDER
     Route: 048
  7. KLONOPIN [Concomitant]
     Indication: FEELING OF RELAXATION
     Route: 048
  8. SEROQUEL [Concomitant]
     Indication: SLEEP DISORDER
     Route: 048

REACTIONS (4)
  - APPLICATION SITE RASH [None]
  - INAPPROPRIATE SCHEDULE OF DRUG ADMINISTRATION [None]
  - PRODUCT ADHESION ISSUE [None]
  - WRONG TECHNIQUE IN DRUG USAGE PROCESS [None]
